FAERS Safety Report 7543185-0 (Version None)
Quarter: 2011Q2

REPORT INFORMATION
  Report Type: 
  Country: None (occurrence: None)
  Receive Date: 20110524
  Receipt Date: 20110207
  Transmission Date: 20111010
  Serious: No
  Sender: FDA-Public Use
  Company Number: 024632

PATIENT
  Sex: Male

DRUGS (1)
  1. CIMZIA [Suspect]
     Indication: CROHN'S DISEASE
     Dosage: (LYO SUBCUTANEOUS)
     Route: 058
     Dates: start: 20100521

REACTIONS (4)
  - RASH MACULAR [None]
  - INFLUENZA [None]
  - PRURITUS [None]
  - DRUG DOSE OMISSION [None]
